FAERS Safety Report 7476961-3 (Version None)
Quarter: 2011Q2

REPORT INFORMATION
  Report Type: 
  Country: None (occurrence: None)
  Receive Date: 20110512
  Receipt Date: 20110504
  Transmission Date: 20111010
  Serious: Yes (Death, Hospitalization, Other)
  Sender: FDA-Public Use
  Company Number: AR-GENZYME-CLOF-1001600

PATIENT
  Age: 10 Year
  Sex: Female

DRUGS (4)
  1. CLOLAR [Suspect]
     Indication: ACUTE MYELOID LEUKAEMIA
     Dosage: UNK, CYCLE 1
     Route: 065
  2. CYTARABINE [Suspect]
     Dosage: UNK, CYCLE 2
     Route: 065
  3. CLOLAR [Suspect]
     Dosage: UNK, CYCLE 2
     Route: 065
  4. CYTARABINE [Suspect]
     Indication: ACUTE MYELOID LEUKAEMIA
     Dosage: UNK, CYCLE 1
     Route: 065

REACTIONS (2)
  - CEREBRAL HAEMORRHAGE [None]
  - THROMBOCYTOPENIA [None]
